FAERS Safety Report 8590418-8 (Version None)
Quarter: 2012Q3

REPORT INFORMATION
  Report Type: 
  Country: None (occurrence: None)
  Receive Date: 20120813
  Receipt Date: 20120804
  Transmission Date: 20120928
  Serious: Yes (Other)
  Sender: FDA-Public Use
  Company Number: US-BAYER-2012-080066

PATIENT
  Sex: Female

DRUGS (5)
  1. LORAZEPAM [Concomitant]
     Indication: SCHIZOPHRENIA
  2. KERAZAMATIN [Concomitant]
     Indication: ANXIETY
  3. MIRENA [Suspect]
     Dosage: 20 MCG/24HR, CONT
     Route: 015
     Dates: start: 20120701
  4. LORAZEPAM [Concomitant]
     Indication: ANXIETY
  5. KERAZAMATIN [Concomitant]
     Indication: SCHIZOPHRENIA

REACTIONS (17)
  - HYPERSOMNIA [None]
  - PAIN IN EXTREMITY [None]
  - WEIGHT INCREASED [None]
  - NO ADVERSE EVENT [None]
  - BACK PAIN [None]
  - ABDOMINAL DISTENSION [None]
  - ABDOMINAL DISCOMFORT [None]
  - PRURITUS [None]
  - MENSTRUATION DELAYED [None]
  - VAGINAL HAEMORRHAGE [None]
  - POST PROCEDURAL HAEMORRHAGE [None]
  - HEADACHE [None]
  - NAUSEA [None]
  - LIBIDO DECREASED [None]
  - FATIGUE [None]
  - PROCEDURAL PAIN [None]
  - DEPRESSED MOOD [None]
